FAERS Safety Report 12036874 (Version 1)
Quarter: 2016Q1

REPORT INFORMATION
  Report Type: Spontaneous
  Country: FR (occurrence: FR)
  Receive Date: 20160208
  Receipt Date: 20160208
  Transmission Date: 20160526
  Serious: Yes (Congenital Anomaly)
  Sender: FDA-Public Use
  Company Number: FR-ROCHE-1702288

PATIENT
  Age: 34 Year
  Sex: Female

DRUGS (14)
  1. CELLCEPT [Suspect]
     Active Substance: MYCOPHENOLATE MOFETIL\MYCOPHENOLATE MOFETIL HYDROCHLORIDE
     Indication: CUTANEOUS LUPUS ERYTHEMATOSUS
     Route: 065
     Dates: start: 20141113, end: 20141217
  2. BACTRIM [Concomitant]
     Active Substance: SULFAMETHOXAZOLE\TRIMETHOPRIM
     Route: 065
     Dates: start: 20150411, end: 20150505
  3. PLAQUENIL [Suspect]
     Active Substance: HYDROXYCHLOROQUINE SULFATE
     Indication: CUTANEOUS LUPUS ERYTHEMATOSUS
     Route: 065
     Dates: start: 20141113, end: 20150511
  4. LOXEN (FRANCE) [Suspect]
     Active Substance: NICARDIPINE HYDROCHLORIDE
     Indication: HYPERTENSION
     Route: 065
     Dates: start: 20141113, end: 20150511
  5. LASILIX [Suspect]
     Active Substance: FUROSEMIDE
     Indication: PRODUCT USED FOR UNKNOWN INDICATION
     Route: 065
     Dates: start: 20141217, end: 20150511
  6. ASPEGIC [Suspect]
     Active Substance: ASPIRIN DL-LYSINE
     Indication: PRODUCT USED FOR UNKNOWN INDICATION
     Route: 065
     Dates: start: 20141113, end: 20150511
  7. LOVENOX [Suspect]
     Active Substance: ENOXAPARIN SODIUM
     Indication: THROMBOSIS
     Route: 065
     Dates: start: 20141113, end: 20150511
  8. TAMIFLU [Concomitant]
     Active Substance: OSELTAMIVIR PHOSPHATE
     Route: 065
     Dates: start: 20150411, end: 20150505
  9. CLAMOXYL (FRANCE) [Concomitant]
     Active Substance: AMOXICILLIN\CLAVULANIC ACID
     Indication: LUNG INFECTION
     Route: 065
     Dates: start: 20150411, end: 20150505
  10. IMUREL [Suspect]
     Active Substance: AZATHIOPRINE SODIUM
     Indication: CUTANEOUS LUPUS ERYTHEMATOSUS
     Route: 065
     Dates: start: 20141113, end: 20150511
  11. LOSARTAN POTASSIUM. [Suspect]
     Active Substance: LOSARTAN POTASSIUM
     Indication: HYPERTENSION
     Route: 065
     Dates: start: 20141113, end: 20141217
  12. CORTANCYL [Suspect]
     Active Substance: PREDNISONE
     Indication: CUTANEOUS LUPUS ERYTHEMATOSUS
     Route: 065
     Dates: start: 20141113, end: 20150511
  13. TRANDATE [Suspect]
     Active Substance: LABETALOL HYDROCHLORIDE
     Indication: HYPERTENSION
     Route: 065
     Dates: start: 20150115, end: 20150511
  14. ROVAMYCINE [Suspect]
     Active Substance: SPIRAMYCIN
     Indication: LUNG INFECTION
     Route: 065
     Dates: start: 20150411, end: 20150505

REACTIONS (2)
  - Polyhydramnios [Not Recovered/Not Resolved]
  - Exposure during pregnancy [Unknown]

NARRATIVE: CASE EVENT DATE: 20150416
